FAERS Safety Report 22069783 (Version 2)
Quarter: 2023Q4

REPORT INFORMATION
  Report Type: Spontaneous
  Country: US (occurrence: US)
  Receive Date: 20230307
  Receipt Date: 20231024
  Transmission Date: 20240110
  Serious: Yes (Death, Hospitalization)
  Sender: FDA-Public Use
  Company Number: US-AMNEAL PHARMACEUTICALS-2022-AMRX-00532

PATIENT
  Age: 71 Year
  Sex: Male

DRUGS (5)
  1. RYTARY [Suspect]
     Active Substance: CARBIDOPA\LEVODOPA
     Indication: Product used for unknown indication
     Dosage: 2 CAPSULES, 3 /DAY
     Route: 048
  2. RYTARY [Suspect]
     Active Substance: CARBIDOPA\LEVODOPA
     Dosage: TAKE 3 CAPSULES BY MOUTH AT 12AM, TAKE 2 CAPSULES BY MOUTH AT 8AM, 12PM, 4PM, AND 8PM
     Route: 048
     Dates: end: 202205
  3. RYTARY [Suspect]
     Active Substance: CARBIDOPA\LEVODOPA
     Dosage: 2 CAPSULES BY MOUTH AT 8 AM AND 12 PM, 1 CAPSULE AT 4 PM, 8PM, 2 CAPSULES AT 12 AM
     Route: 048
     Dates: start: 20220902
  4. RYTARY [Suspect]
     Active Substance: CARBIDOPA\LEVODOPA
     Dosage: 3 CAPSULES, 4 /DAY
  5. RYTARY [Suspect]
     Active Substance: CARBIDOPA\LEVODOPA
     Dosage: 2 CAPSULES BY MOUTH AT 8 AM AND 12 PM, TAKE 1 CAPSULE BY MOUTH AT 4 PM AND 8 PM, THEN TAKE 2 CAPSULE
     Route: 048

REACTIONS (3)
  - Adverse event [Fatal]
  - Hypersensitivity [Unknown]
  - Tremor [Unknown]

NARRATIVE: CASE EVENT DATE: 20220223
